FAERS Safety Report 5973708-4 (Version None)
Quarter: 2008Q4

REPORT INFORMATION
  Report Type: 
  Country: None (occurrence: None)
  Receive Date: 20081201
  Receipt Date: 20081121
  Transmission Date: 20090506
  Serious: Yes (Other)
  Sender: FDA-Public Use
  Company Number: US-AVENTIS-200817979US

PATIENT

DRUGS (2)
  1. LANTUS [Suspect]
     Route: 058
  2. ORAL ANTIDIABETICS [Concomitant]
     Dosage: DOSE: UNK
     Route: 048

REACTIONS (2)
  - HYPOGLYCAEMIA [None]
  - ROAD TRAFFIC ACCIDENT [None]
